FAERS Safety Report 12775297 (Version 2)
Quarter: 2016Q4

REPORT INFORMATION
  Report Type: Report from Study
  Country: US (occurrence: US)
  Receive Date: 20160923
  Receipt Date: 20161208
  Transmission Date: 20170207
  Serious: No
  Sender: FDA-Public Use
  Company Number: PHEH2016US024179

PATIENT
  Sex: Female

DRUGS (1)
  1. VOTRIENT [Suspect]
     Active Substance: PAZOPANIB HYDROCHLORIDE
     Indication: PRODUCT USED FOR UNKNOWN INDICATION
     Dosage: 200 MG, QID
     Route: 048

REACTIONS (5)
  - Cerebral disorder [Unknown]
  - Nausea [Not Recovered/Not Resolved]
  - General physical health deterioration [Unknown]
  - Memory impairment [Unknown]
  - Malaise [Unknown]
